FAERS Safety Report 15936292 (Version 2)
Quarter: 2019Q2

REPORT INFORMATION
  Report Type: Spontaneous
  Country: US (occurrence: US)
  Receive Date: 20190208
  Receipt Date: 20190513
  Transmission Date: 20190711
  Serious: Yes (Death)
  Sender: FDA-Public Use
  Company Number: US-UNICHEM PHARMACEUTICALS (USA) INC-UCM201901-000034

PATIENT
  Sex: Male
  Weight: 95.25 kg

DRUGS (3)
  1. HYDROCHLOROTHIAZIDE. [Suspect]
     Active Substance: HYDROCHLOROTHIAZIDE
     Indication: ISCHAEMIC HEART DISEASE PROPHYLAXIS
     Dosage: 25 MG TABLETS TAKE HALF A TABLET BY MOUTH
     Route: 048
  2. HYDROCHLOROTHIAZIDE. [Suspect]
     Active Substance: HYDROCHLOROTHIAZIDE
     Indication: CEREBROVASCULAR ACCIDENT PROPHYLAXIS
     Dosage: 4 YEARS AGO
     Route: 048
  3. ADVIL [Concomitant]
     Active Substance: IBUPROFEN
     Indication: HEADACHE
     Dosage: 2 TABLETS

REACTIONS (3)
  - Dizziness [Unknown]
  - Death [Fatal]
  - Headache [Unknown]
